FAERS Safety Report 8965577 (Version 1)
Quarter: 2012Q4

REPORT INFORMATION
  Report Type: Spontaneous
  Country: US (occurrence: None)
  Receive Date: 20121212
  Receipt Date: 20121212
  Transmission Date: 20130627
  Serious: Yes (Disabling, Other)
  Sender: FDA-Public Use
  Company Number: None

PATIENT
  Age: 65 Year
  Sex: Female
  Weight: 63.5 kg

DRUGS (2)
  1. PROLIA [Suspect]
     Indication: OSTEOPOROSIS
     Dosage: ?  every 6 months
04/05/2012  --  10/04/2012
     Dates: start: 20120405, end: 20121004
  2. PROLIA [Suspect]
     Indication: OSTEOPOROSIS
     Dosage: 2 months
10/05/2012 -- 12/08/2012
     Dates: start: 20121005, end: 20121208

REACTIONS (5)
  - Pain in extremity [None]
  - Groin pain [None]
  - Insomnia [None]
  - Pain [None]
  - Stress [None]
